FAERS Safety Report 11984924 (Version 2)
Quarter: 2016Q1

REPORT INFORMATION
  Report Type: Spontaneous
  Country: US (occurrence: US)
  Receive Date: 20160201
  Receipt Date: 20160324
  Transmission Date: 20160526
  Serious: No
  Sender: FDA-Public Use
  Company Number: US-LEO PHARMA-239689

PATIENT
  Age: 55 Year
  Sex: Female

DRUGS (1)
  1. PICATO [Suspect]
     Active Substance: INGENOL MEBUTATE
     Indication: ACTINIC CHEILITIS

REACTIONS (3)
  - Application site erythema [Not Recovered/Not Resolved]
  - Product use issue [Unknown]
  - Application site papules [Recovered/Resolved]
